FAERS Safety Report 5044527-0 (Version None)
Quarter: 2006Q3

REPORT INFORMATION
  Report Type: 
  Country: None (occurrence: None)
  Receive Date: 20060706
  Receipt Date: 20060627
  Transmission Date: 20061208
  Serious: Yes (Hospitalization)
  Sender: FDA-Public Use
  Company Number: FR-BRISTOL-MYERS SQUIBB COMPANY-13431309

PATIENT
  Age: 54 Year
  Sex: Male

DRUGS (3)
  1. ETOPOSIDE [Suspect]
     Indication: TESTICULAR NEOPLASM
     Dates: end: 20050319
  2. CISPLATIN [Suspect]
     Indication: TESTICULAR NEOPLASM
  3. BLEOMYCIN [Suspect]
     Indication: TESTICULAR NEOPLASM

REACTIONS (5)
  - COUGH [None]
  - LEUKOPENIA [None]
  - PRODUCTIVE COUGH [None]
  - PYREXIA [None]
  - THROMBOCYTOPENIA [None]
